FAERS Safety Report 23563712 (Version 8)
Quarter: 2025Q1

REPORT INFORMATION
  Report Type: Report from Study
  Country: US (occurrence: US)
  Receive Date: 20240226
  Receipt Date: 20250327
  Transmission Date: 20250409
  Serious: Yes (Hospitalization, Other)
  Sender: TAKEDA
  Company Number: US-TAKEDA-2024TUS001207

PATIENT
  Age: 34 Year
  Sex: Female
  Weight: 70 kg

DRUGS (47)
  1. HUMAN IMMUNOGLOBULIN G [Suspect]
     Active Substance: HUMAN IMMUNOGLOBULIN G
     Indication: Acute lymphocytic leukaemia recurrent
  2. HUMAN IMMUNOGLOBULIN G [Suspect]
     Active Substance: HUMAN IMMUNOGLOBULIN G
     Indication: Anaemia
     Dosage: UNK UNK, Q4WEEKS
     Dates: start: 20231004
  3. HUMAN IMMUNOGLOBULIN G [Suspect]
     Active Substance: HUMAN IMMUNOGLOBULIN G
  4. HUMAN IMMUNOGLOBULIN G [Suspect]
     Active Substance: HUMAN IMMUNOGLOBULIN G
     Dosage: UNK UNK, Q3WEEKS
  5. HUMAN IMMUNOGLOBULIN G [Suspect]
     Active Substance: HUMAN IMMUNOGLOBULIN G
  6. HUMAN IMMUNOGLOBULIN G [Suspect]
     Active Substance: HUMAN IMMUNOGLOBULIN G
  7. EPINEPHRINE [Concomitant]
     Active Substance: EPINEPHRINE
  8. ACETAMINOPHEN [Concomitant]
     Active Substance: ACETAMINOPHEN
  9. CRESTOR [Concomitant]
     Active Substance: ROSUVASTATIN CALCIUM
  10. LEVOTHYROXINE SODIUM [Concomitant]
     Active Substance: LEVOTHYROXINE SODIUM
  11. DILAUDID [Concomitant]
     Active Substance: HYDROMORPHONE HYDROCHLORIDE
  12. SODIUM CHLORIDE [Concomitant]
     Active Substance: SODIUM CHLORIDE
  13. KEPPRA [Concomitant]
     Active Substance: LEVETIRACETAM
  14. LYRICA [Concomitant]
     Active Substance: PREGABALIN
  15. LIDOCAINE [Concomitant]
     Active Substance: LIDOCAINE
  16. EPIPEN [Concomitant]
     Active Substance: EPINEPHRINE
  17. ALBUTEROL SULFATE [Concomitant]
     Active Substance: ALBUTEROL SULFATE
  18. HEPARIN SODIUM [Concomitant]
     Active Substance: HEPARIN SODIUM
  19. ZOSTRIX HP [Concomitant]
     Active Substance: CAPSAICIN
  20. CORTEF [Concomitant]
     Active Substance: HYDROCORTISONE
  21. DIPHENHYDRAMINE HYDROCHLORIDE [Concomitant]
     Active Substance: DIPHENHYDRAMINE HYDROCHLORIDE
  22. SODIUM CHLORIDE [Concomitant]
     Active Substance: SODIUM CHLORIDE
  23. ACYCLOVIR [Concomitant]
     Active Substance: ACYCLOVIR
  24. CYMBALTA [Concomitant]
     Active Substance: DULOXETINE HYDROCHLORIDE
  25. VITAMIN B1 [Concomitant]
     Active Substance: THIAMINE HYDROCHLORIDE
  26. VITAMIN B6 [Concomitant]
     Active Substance: PYRIDOXINE HYDROCHLORIDE
  27. FLUBLOK QUADRIVALENT NOS [Concomitant]
     Active Substance: INFLUENZA VIRUS VACCINE
  28. ALBUTEROL [Concomitant]
     Active Substance: ALBUTEROL
  29. HEPARIN [Concomitant]
     Active Substance: HEPARIN SODIUM
  30. VOLTAREN [Concomitant]
     Active Substance: DICLOFENAC SODIUM
  31. LORAZEPAM [Concomitant]
     Active Substance: LORAZEPAM
  32. TOLTERODINE TARTRATE [Concomitant]
     Active Substance: TOLTERODINE TARTRATE
  33. HYDROCORTISONE [Concomitant]
     Active Substance: HYDROCORTISONE
  34. FAMOTIDINE [Concomitant]
     Active Substance: FAMOTIDINE
  35. MELATONIN [Concomitant]
     Active Substance: MELATONIN
  36. VITAMIN C [Concomitant]
     Active Substance: ASCORBIC ACID
  37. TRAZODONE [Concomitant]
     Active Substance: TRAZODONE HYDROCHLORIDE
  38. HIPREX [Concomitant]
     Active Substance: METHENAMINE HIPPURATE
  39. THIAMINE [Concomitant]
     Active Substance: THIAMINE
  40. DIPHENHYDRAMINE [Concomitant]
     Active Substance: DIPHENHYDRAMINE
  41. VITAMIN B [Concomitant]
     Active Substance: VITAMIN B
  42. THIAMINE HYDROCHLORIDE [Concomitant]
     Active Substance: THIAMINE HYDROCHLORIDE
  43. METHYLPREDNISOLONE [Concomitant]
     Active Substance: METHYLPREDNISOLONE
  44. TRAZODONE HCL [Concomitant]
     Active Substance: TRAZODONE HYDROCHLORIDE
  45. ICY HOT [Concomitant]
     Active Substance: MENTHOL\METHYL SALICYLATE
  46. Arthritis Pain [Concomitant]
  47. VOLTAREN ARTHRITIS PAIN [Concomitant]
     Active Substance: DICLOFENAC SODIUM

REACTIONS (21)
  - Sepsis [Unknown]
  - Infection [Unknown]
  - Urinary retention [Unknown]
  - Urinary tract infection [Unknown]
  - Neuropathy peripheral [Unknown]
  - Diarrhoea [Unknown]
  - Motor dysfunction [Unknown]
  - Hypersomnia [Unknown]
  - Urine output decreased [Unknown]
  - Product use in unapproved indication [Unknown]
  - Chromaturia [Unknown]
  - Abnormal behaviour [Unknown]
  - Bedridden [Unknown]
  - Musculoskeletal pain [Unknown]
  - Skin discolouration [Unknown]
  - Blood pressure decreased [Unknown]
  - Lethargy [Unknown]
  - Infusion site pruritus [Unknown]
  - Pyrexia [Unknown]
  - Tachycardia [Unknown]
  - Headache [Unknown]

NARRATIVE: CASE EVENT DATE: 20231003
